FAERS Safety Report 4485221-4 (Version None)
Quarter: 2004Q4

REPORT INFORMATION
  Report Type: 
  Country: None (occurrence: None)
  Receive Date: 20041026
  Receipt Date: 20040709
  Transmission Date: 20050328
  Serious: No
  Sender: FDA-Public Use
  Company Number: US-BRISTOL-MYERS SQUIBB COMPANY-12636304

PATIENT
  Age: 69 Year
  Sex: Male
  Weight: 80 kg

DRUGS (5)
  1. GLUCOPHAGE XR [Suspect]
     Indication: DIABETES MELLITUS
     Route: 048
     Dates: start: 20040404
  2. DIOVAN HCT [Concomitant]
  3. PROSCAR [Concomitant]
  4. STARLIX [Concomitant]
  5. TRICOR [Concomitant]

REACTIONS (3)
  - BLOOD CHOLESTEROL DECREASED [None]
  - DIPLOPIA [None]
  - VITAMIN B12 DEFICIENCY [None]
